FAERS Safety Report 9640965 (Version 1)
Quarter: 2013Q4

REPORT INFORMATION
  Report Type: Report from Study
  Country: US (occurrence: US)
  Receive Date: 20131023
  Receipt Date: 20131023
  Transmission Date: 20140711
  Serious: No
  Sender: FDA-Public Use
  Company Number: US-ABBVIE-13P-163-1114309-00

PATIENT
  Age: 42 Year
  Sex: Female
  Weight: 86.26 kg

DRUGS (2)
  1. LUPRON DEPOT [Suspect]
     Indication: HYSTERECTOMY
     Dates: start: 20130527
  2. LUPRON DEPOT [Suspect]
     Indication: POLYCYSTIC OVARIES

REACTIONS (6)
  - Headache [Not Recovered/Not Resolved]
  - Abdominal pain upper [Recovered/Resolved]
  - Nausea [Not Recovered/Not Resolved]
  - Diarrhoea [Not Recovered/Not Resolved]
  - Off label use [Unknown]
  - Abdominal pain upper [Unknown]
